FAERS Safety Report 5161803-1 (Version None)
Quarter: 2006Q4

REPORT INFORMATION
  Report Type: 
  Country: None (occurrence: None)
  Receive Date: 20061130
  Receipt Date: 20061120
  Transmission Date: 20070319
  Serious: Yes (Hospitalization)
  Sender: FDA-Public Use
  Company Number: PHBS2006BG18218

PATIENT
  Age: 34 Year
  Sex: Male
  Weight: 84 kg

DRUGS (4)
  1. ANTELEPSIN [Concomitant]
     Dosage: 0.5 MG, QHS
  2. LEPONEX [Suspect]
     Indication: PSYCHOTIC DISORDER
     Dosage: 400 MG/D
     Route: 048
     Dates: start: 20030101
  3. LEPONEX [Suspect]
     Dosage: 400 MG/D
     Route: 048
     Dates: end: 20061101
  4. LEPONEX [Suspect]
     Dosage: 500 MG/D
     Route: 048
     Dates: start: 20061116

REACTIONS (4)
  - AGGRESSION [None]
  - DRUG INEFFECTIVE [None]
  - EXTRAPYRAMIDAL DISORDER [None]
  - OBSESSIVE-COMPULSIVE DISORDER [None]
